FAERS Safety Report 23771718 (Version 1)
Quarter: 2024Q2

REPORT INFORMATION
  Report Type: Spontaneous
  Country: US (occurrence: US)
  Receive Date: 20240423
  Receipt Date: 20240423
  Transmission Date: 20240715
  Serious: No
  Sender: FDA-Public Use
  Company Number: SCLX2400052

PATIENT
  Age: 79 Year
  Sex: Female

DRUGS (1)
  1. ZTLIDO [Suspect]
     Active Substance: LIDOCAINE
     Indication: Herpes zoster
     Dosage: SINGLE-DOSE
     Route: 061
     Dates: start: 20240223, end: 20240223

REACTIONS (3)
  - Skin injury [Unknown]
  - Product quality issue [Unknown]
  - Drug ineffective [Unknown]

NARRATIVE: CASE EVENT DATE: 20240223
